FAERS Safety Report 7555132-6 (Version None)
Quarter: 2011Q2

REPORT INFORMATION
  Report Type: 
  Country: None (occurrence: None)
  Receive Date: 20110617
  Receipt Date: 20110608
  Transmission Date: 20111010
  Serious: Yes (Death)
  Sender: FDA-Public Use
  Company Number: FR-UCBSA-031479

PATIENT
  Sex: Male

DRUGS (9)
  1. AZILECT [Suspect]
     Dates: start: 20100717
  2. AZILECT [Concomitant]
     Indication: PARKINSON'S DISEASE
     Route: 048
     Dates: start: 20100701, end: 20110401
  3. SINEMET CR [Suspect]
     Dosage: 50 MG / 200 MG
     Dates: start: 20061228
  4. REQUIP [Suspect]
     Dates: end: 20110417
  5. SINEMET [Concomitant]
     Indication: PARKINSON'S DISEASE
     Dosage: FOR SEVERAL YEARS
     Route: 048
     Dates: end: 20110401
  6. NEUPRO [Suspect]
     Indication: PARKINSON'S DISEASE
     Route: 062
     Dates: start: 20110418
  7. STALEVO 100 [Suspect]
     Dosage: 150 MG / 37.5 MG / 200 MG
     Dates: start: 20050604
  8. STALEVO 100 [Concomitant]
     Indication: PARKINSON'S DISEASE
     Dosage: FOR SEVERAL YEARS
     Route: 048
     Dates: end: 20110401
  9. REQUIP [Concomitant]
     Dates: end: 20110418

REACTIONS (3)
  - MYOCARDIAL INFARCTION [None]
  - CHEST PAIN [None]
  - MALAISE [None]
